FAERS Safety Report 6542242-5 (Version None)
Quarter: 2010Q1

REPORT INFORMATION
  Report Type: 
  Country: None (occurrence: None)
  Receive Date: 20100119
  Receipt Date: 20091230
  Transmission Date: 20100710
  Serious: Yes (Hospitalization)
  Sender: FDA-Public Use
  Company Number: B0626434A

PATIENT
  Age: 59 Year
  Sex: Male

DRUGS (4)
  1. COMBIVIR [Suspect]
     Indication: HIV INFECTION
     Route: 065
     Dates: start: 20071201, end: 20091120
  2. VIREAD [Suspect]
     Indication: HIV INFECTION
     Route: 065
     Dates: start: 20071201, end: 20091120
  3. ATRIPLA [Suspect]
     Indication: HIV INFECTION
     Route: 065
     Dates: start: 20091120, end: 20091209
  4. SUSTIVA [Suspect]
     Indication: HIV INFECTION
     Route: 065
     Dates: start: 20071201, end: 20091120

REACTIONS (1)
  - TOXIC EPIDERMAL NECROLYSIS [None]
